FAERS Safety Report 6891706-3 (Version None)
Quarter: 2010Q3

REPORT INFORMATION
  Report Type: 
  Country: None (occurrence: None)
  Receive Date: 20100731
  Receipt Date: 20070928
  Transmission Date: 20110219
  Serious: No
  Sender: FDA-Public Use
  Company Number: US-PFIZER INC-2007079013

PATIENT
  Sex: Female
  Weight: 80 kg

DRUGS (6)
  1. NEURONTIN [Suspect]
     Indication: NEUROPATHY PERIPHERAL
     Dosage: EVERYDAY
     Route: 048
     Dates: start: 20050101, end: 20070901
  2. GABAPENTIN [Suspect]
  3. LYRICA [Suspect]
     Indication: NEUROPATHY PERIPHERAL
     Route: 048
     Dates: start: 20070920
  4. PLAVIX [Concomitant]
     Indication: CEREBROVASCULAR ACCIDENT
     Route: 048
  5. ATACAND [Concomitant]
     Indication: GASTROOESOPHAGEAL REFLUX DISEASE
     Route: 048
  6. NEXIUM [Concomitant]
     Indication: BLOOD PRESSURE
     Route: 048

REACTIONS (4)
  - FAECES DISCOLOURED [None]
  - FLATULENCE [None]
  - MYDRIASIS [None]
  - NEUROPATHY PERIPHERAL [None]
